FAERS Safety Report 9541913 (Version 2)
Quarter: 2013Q3

REPORT INFORMATION
  Report Type: Report from Study
  Country: CA (occurrence: CA)
  Receive Date: 20130923
  Receipt Date: 20130923
  Transmission Date: 20140515
  Serious: Yes (Hospitalization, Other)
  Sender: FDA-Public Use
  Company Number: CA-ABBVIE-13P-028-1049571-00

PATIENT
  Age: 16 Year
  Sex: Male
  Weight: 50 kg

DRUGS (7)
  1. HUMIRA [Suspect]
     Indication: CROHN^S DISEASE
     Route: 058
     Dates: start: 20110811
  2. HUMIRA [Suspect]
     Route: 058
     Dates: start: 201302
  3. METHOTREXATE [Concomitant]
     Indication: CROHN^S DISEASE
  4. PREVACID [Concomitant]
     Indication: GASTRIC PH DECREASED
     Route: 048
     Dates: start: 2009
  5. PREDNISONE [Concomitant]
     Indication: PRODUCT USED FOR UNKNOWN INDICATION
  6. CALTRATE D [Concomitant]
     Indication: PRODUCT USED FOR UNKNOWN INDICATION
  7. FERODAN [Concomitant]
     Indication: PRODUCT USED FOR UNKNOWN INDICATION

REACTIONS (8)
  - Enteritis infectious [Recovered/Resolved]
  - Abscess intestinal [Recovered/Resolved]
  - Clostridium difficile infection [Recovered/Resolved]
  - Weight decreased [Recovering/Resolving]
  - Hypophagia [Recovering/Resolving]
  - Diarrhoea [Not Recovered/Not Resolved]
  - Crohn^s disease [Recovered/Resolved]
  - Procedural pain [Not Recovered/Not Resolved]
